FAERS Safety Report 19254059 (Version 1)
Quarter: 2021Q2

REPORT INFORMATION
  Report Type: Report from Study
  Country: GB (occurrence: GB)
  Receive Date: 20210513
  Receipt Date: 20210513
  Transmission Date: 20210717
  Serious: Yes (Life-Threatening, Hospitalization)
  Sender: FDA-Public Use
  Company Number: GB-PFIZER INC-2021524564

PATIENT
  Weight: 50.7 kg

DRUGS (7)
  1. NORETHISTERONE [Concomitant]
     Active Substance: NORETHINDRONE
     Indication: MENSTRUAL CYCLE MANAGEMENT
     Dosage: 5 MG, 3X/DAY
     Dates: start: 20210128
  2. GEMTUZUMAB OZOGAMICIN [Suspect]
     Active Substance: GEMTUZUMAB OZOGAMICIN
     Dosage: 4.5 MG
     Route: 042
     Dates: start: 20210129, end: 20210205
  3. AMBISOME [Concomitant]
     Active Substance: AMPHOTERICIN B
     Indication: ANTIFUNGAL PROPHYLAXIS
     Dosage: 18 MG (MONDAY, THURSDAY)
     Dates: start: 20210215, end: 20210318
  4. MITOXANTRONE HCL [Suspect]
     Active Substance: MITOXANTRONE HYDROCHLORIDE
     Dosage: 12 MG/M2, DAILY
     Route: 042
     Dates: start: 20210126, end: 20210129
  5. COTRIMOXAZOLE [Concomitant]
     Active Substance: SULFAMETHOXAZOLE\TRIMETHOPRIM
     Indication: PNEUMOCYSTIS JIROVECII PNEUMONIA
     Dosage: 480 MG (SATURDAYS, SUNDAYS)
     Dates: start: 20210123
  6. AMILORIDE [Concomitant]
     Active Substance: AMILORIDE
     Dosage: 5 MG, DAILY
     Dates: start: 20210215, end: 20210318
  7. OMEPRAZOLE. [Concomitant]
     Active Substance: OMEPRAZOLE
     Indication: REFLUX GASTRITIS
     Dosage: 20 MG, DAILY
     Dates: start: 20210205

REACTIONS (1)
  - Left ventricular dysfunction [Recovered/Resolved]

NARRATIVE: CASE EVENT DATE: 20210322
